FAERS Safety Report 9366019 (Version 1)
Quarter: 2013Q2

REPORT INFORMATION
  Report Type: Spontaneous
  Country: US (occurrence: US)
  Receive Date: 20130625
  Receipt Date: 20130625
  Transmission Date: 20140414
  Serious: No
  Sender: FDA-Public Use
  Company Number: US-FOUGERA-2012FO001342

PATIENT
  Age: 43 Year
  Sex: Female

DRUGS (2)
  1. METRONIDAZOLE [Suspect]
     Indication: ROSACEA
     Route: 061
     Dates: start: 20120902, end: 20121001
  2. LEVOTHYROXINE [Concomitant]
     Indication: THYROID DISORDER
     Dosage: DAILY DOSE: 100 MCG,
     Route: 048

REACTIONS (1)
  - Drug screen positive [Recovered/Resolved]
